FAERS Safety Report 4542973-2 (Version None)
Quarter: 2004Q4

REPORT INFORMATION
  Report Type: 
  Country: None (occurrence: None)
  Receive Date: 20041229
  Receipt Date: 20041223
  Transmission Date: 20050328
  Serious: Yes (Life-Threatening, Hospitalization, Disabling)
  Sender: FDA-Public Use
  Company Number: F01200404023

PATIENT
  Age: 49 Year

DRUGS (4)
  1. ELOXATIN [Suspect]
     Indication: COLORECTAL CANCER
     Dosage: 160 MG Q2W
     Route: 042
  2. ELOXATIN [Suspect]
     Indication: METASTASES TO LIVER
     Dosage: 160 MG Q2W
     Route: 042
  3. FLUOROURACIL) SOLUTION 4480 MG [Suspect]
     Dosage: 4480 MG (SEE IMAGE)
     Route: 042
  4. (LEUCOVORIN) SOLUTION 200MG/M2 [Suspect]
     Dosage: 320 MG (400MG/M2 ON D1 AND 2) Q2W
     Route: 042

REACTIONS (1)
  - PERICARDITIS [None]
